FAERS Safety Report 15674809 (Version 1)
Quarter: 2018Q4

REPORT INFORMATION
  Report Type: Spontaneous
  Country: TW (occurrence: TW)
  Receive Date: 20181130
  Receipt Date: 20181130
  Transmission Date: 20190205
  Serious: Yes (Hospitalization, Other)
  Sender: FDA-Public Use
  Company Number: TW-ACCORD-094207

PATIENT
  Age: 35 Year
  Sex: Female

DRUGS (5)
  1. GLYCOPYRRONIUM [Concomitant]
     Active Substance: GLYCOPYRRONIUM
     Indication: SCHIZOAFFECTIVE DISORDER
     Dosage: 2 MG/DAY
  2. CLOZAPINE. [Suspect]
     Active Substance: CLOZAPINE
     Indication: SCHIZOAFFECTIVE DISORDER
     Dosage: INCREASED TO 100 MG/DAY
  3. BUPROPION/BUPROPION HYDROCHLORIDE [Interacting]
     Active Substance: BUPROPION HYDROCHLORIDE
     Indication: SCHIZOAFFECTIVE DISORDER
     Dosage: 150 MG
  4. LITHIUM. [Concomitant]
     Active Substance: LITHIUM
     Indication: SCHIZOAFFECTIVE DISORDER
     Dosage: 600 MG/DAY
  5. ESTAZOLAM. [Concomitant]
     Active Substance: ESTAZOLAM
     Indication: SCHIZOAFFECTIVE DISORDER
     Dosage: 2 MG/DAY

REACTIONS (2)
  - Generalised tonic-clonic seizure [Recovered/Resolved]
  - Drug interaction [Unknown]
